FAERS Safety Report 25803161 (Version 3)
Quarter: 2025Q4

REPORT INFORMATION
  Report Type: Spontaneous
  Country: US (occurrence: US)
  Receive Date: 20250915
  Receipt Date: 20251214
  Transmission Date: 20260118
  Serious: Yes (Hospitalization, Other)
  Sender: JOHNSON AND JOHNSON
  Company Number: US-JNJFOC-20250913379

PATIENT
  Age: 57 Year
  Sex: Male

DRUGS (1)
  1. CARVYKTI [Suspect]
     Active Substance: CILTACABTAGENE AUTOLEUCEL
     Indication: Plasma cell myeloma
     Dates: start: 20250627, end: 20250627

REACTIONS (3)
  - Trigeminal nerve paresis [Recovering/Resolving]
  - VIth nerve paralysis [Recovering/Resolving]
  - Facial paralysis [Recovered/Resolved]
